FAERS Safety Report 13674561 (Version 3)
Quarter: 2017Q3

REPORT INFORMATION
  Report Type: Spontaneous
  Country: IT (occurrence: IT)
  Receive Date: 20170621
  Receipt Date: 20170713
  Transmission Date: 20171127
  Serious: Yes (Hospitalization)
  Sender: FDA-Public Use
  Company Number: IT-009507513-1706ITA005620

PATIENT
  Age: 73 Year
  Sex: Female

DRUGS (4)
  1. VIEKIRAX [Suspect]
     Active Substance: OMBITASVIR\PARITAPREVIR\RITONAVIR
     Indication: HEPATITIS C
     Dosage: STRENGTH: 12.5 MG/75 MG/50 MG; 2 DOSE (UNIT), DAILY
     Route: 048
     Dates: start: 20160118, end: 20160224
  2. DEURSIL [Concomitant]
     Active Substance: URSODIOL
     Dosage: 900 MG, UNK
     Route: 048
  3. EXVIERA [Suspect]
     Active Substance: DASABUVIR
     Indication: HEPATITIS C
     Dosage: 2 DOSE (UNIT), DAILY
     Route: 048
     Dates: start: 20160118, end: 20160224
  4. REBETOL [Suspect]
     Active Substance: RIBAVIRIN
     Indication: HEPATITIS C
     Dosage: 2 DOSE (UNIT), DAILY
     Route: 048
     Dates: start: 20160118, end: 20160224

REACTIONS (2)
  - Ascites [Recovered/Resolved]
  - Oedema peripheral [Recovered/Resolved]

NARRATIVE: CASE EVENT DATE: 20160205
